FAERS Safety Report 10878170 (Version 1)
Quarter: 2015Q1

REPORT INFORMATION
  Report Type: Spontaneous
  Country: US (occurrence: None)
  Receive Date: 20150224
  Receipt Date: 20150224
  Transmission Date: 20150721
  Serious: No
  Sender: FDA-Public Use
  Company Number: None

PATIENT
  Age: 57 Year
  Sex: Female
  Weight: 66.68 kg

DRUGS (3)
  1. ZETIA [Suspect]
     Active Substance: EZETIMIBE
     Indication: BLOOD CHOLESTEROL INCREASED
     Dosage: 1 TABLET ONCE DAILY TAKEN BY MOUTH
     Route: 048
     Dates: start: 20141028, end: 20150214
  2. ASPIRIN. [Suspect]
     Active Substance: ASPIRIN
  3. LEVOTHYROXINE [Concomitant]
     Active Substance: LEVOTHYROXINE

REACTIONS (3)
  - Arthritis [None]
  - Asthenia [None]
  - Pain in extremity [None]

NARRATIVE: CASE EVENT DATE: 20141229
